FAERS Safety Report 25090185 (Version 1)
Quarter: 2025Q1

REPORT INFORMATION
  Report Type: Spontaneous
  Country: US (occurrence: None)
  Receive Date: 20250317
  Receipt Date: 20250317
  Transmission Date: 20250409
  Serious: Yes (Hospitalization)
  Sender: FDA-CTU
  Company Number: None

PATIENT
  Age: 33 Year
  Sex: Female
  Weight: 46.8 kg

DRUGS (1)
  1. VRAYLAR [Suspect]
     Active Substance: CARIPRAZINE
     Indication: Depression
     Route: 048
     Dates: start: 20250207, end: 20250311

REACTIONS (6)
  - Dizziness [None]
  - Balance disorder [None]
  - Loss of consciousness [None]
  - Fall [None]
  - Skin laceration [None]
  - Concussion [None]

NARRATIVE: CASE EVENT DATE: 20250311
